FAERS Safety Report 6409338-X (Version None)
Quarter: 2009Q4

REPORT INFORMATION
  Report Type: 
  Country: None (occurrence: None)
  Receive Date: 20091019
  Receipt Date: 20091019
  Transmission Date: 20100525
  Serious: No
  Sender: FDA-Public Use
  Company Number: None

PATIENT
  Age: 1 Day
  Sex: Male
  Weight: 3.73 kg

DRUGS (2)
  1. GENTAMICIN [Suspect]
     Indication: OPHTHALMIA NEONATORUM
     Dosage: SMALL RIBBON TO EACH EYE ONCE OPHTHALMIC
     Route: 047
     Dates: start: 20091011, end: 20091011
  2. GENTAMICIN [Suspect]
     Indication: PROPHYLAXIS
     Dosage: SMALL RIBBON TO EACH EYE ONCE OPHTHALMIC
     Route: 047
     Dates: start: 20091011, end: 20091011

REACTIONS (4)
  - APPLICATION SITE BLEEDING [None]
  - APPLICATION SITE REACTION [None]
  - APPLICATION SITE SWELLING [None]
  - EYELID MARGIN CRUSTING [None]
